FAERS Safety Report 4291876-X (Version None)
Quarter: 2004Q1

REPORT INFORMATION
  Report Type: 
  Country: None (occurrence: None)
  Receive Date: 20040211
  Receipt Date: 20030820
  Transmission Date: 20041129
  Serious: No
  Sender: FDA-Public Use
  Company Number: US-GLAXOSMITHKLINE-A0422740A

PATIENT
  Age: 48 Year
  Sex: Male
  Weight: 84.5 kg

DRUGS (2)
  1. IMITREX [Suspect]
     Indication: MIGRAINE
     Dosage: 1INJ AS REQUIRED
     Route: 058
     Dates: start: 20000301
  2. AMBIEN [Concomitant]
     Dosage: 5MG TWO TIMES PER WEEK

REACTIONS (1)
  - DRUG INEFFECTIVE [None]
